FAERS Safety Report 5484589-X (Version None)
Quarter: 2007Q4

REPORT INFORMATION
  Report Type: 
  Country: None (occurrence: None)
  Receive Date: 20071012
  Receipt Date: 20071004
  Transmission Date: 20080405
  Serious: Yes (Life-Threatening, Other)
  Sender: FDA-Public Use
  Company Number: GB-PFIZER INC-2007083888

PATIENT
  Sex: Female
  Weight: 63 kg

DRUGS (2)
  1. SERTRALINE HCL [Suspect]
     Indication: DEPRESSION
     Dosage: DAILY DOSE:50MG-TEXT:50MG
  2. VITAMINS [Concomitant]

REACTIONS (2)
  - STILLBIRTH [None]
  - VAGINAL HAEMORRHAGE [None]
